FAERS Safety Report 17856453 (Version 1)
Quarter: 2020Q2

REPORT INFORMATION
  Report Type: Spontaneous
  Country: DK (occurrence: DK)
  Receive Date: 20200603
  Receipt Date: 20200603
  Transmission Date: 20200714
  Serious: Yes (Hospitalization, Disabling)
  Sender: FDA-Public Use
  Company Number: DK-JNJFOC-20200533297

PATIENT
  Age: 48 Year
  Sex: Male

DRUGS (1)
  1. RIVAROXABAN [Suspect]
     Active Substance: RIVAROXABAN
     Indication: THROMBOSIS PROPHYLAXIS
     Dosage: UNK UNK, QD
     Route: 048
     Dates: start: 20151124, end: 20151125

REACTIONS (17)
  - Gastrointestinal motility disorder [Unknown]
  - Balance disorder [Unknown]
  - Gait disturbance [Unknown]
  - Memory impairment [Not Recovered/Not Resolved]
  - Sensory disturbance [Unknown]
  - Sensory disturbance [Unknown]
  - Paralysis [Unknown]
  - Pollakiuria [Not Recovered/Not Resolved]
  - Spinal cord haematoma [Unknown]
  - Erectile dysfunction [Unknown]
  - Paraesthesia [Unknown]
  - Disturbance in attention [Not Recovered/Not Resolved]
  - Neuropathy peripheral [Unknown]
  - Urinary incontinence [Not Recovered/Not Resolved]
  - Muscular weakness [Not Recovered/Not Resolved]
  - Hyperaesthesia [Unknown]
  - Spinal cord operation [Recovered/Resolved]

NARRATIVE: CASE EVENT DATE: 20151125
